FAERS Safety Report 9742187 (Version 1)
Quarter: 2013Q4

REPORT INFORMATION
  Report Type: Spontaneous
  Country: US (occurrence: US)
  Receive Date: 20131210
  Receipt Date: 20131210
  Transmission Date: 20140711
  Serious: No
  Sender: FDA-Public Use
  Company Number: US-PFIZER INC-2013350977

PATIENT
  Age: 66 Year
  Sex: Female
  Weight: 68 kg

DRUGS (1)
  1. PREMARIN [Suspect]
     Indication: VULVOVAGINAL PRURITUS
     Dosage: UNK, 1X/DAY AT BEDTIME
     Route: 067
     Dates: start: 20130829, end: 201309

REACTIONS (2)
  - Hypersensitivity [Unknown]
  - Rash erythematous [Unknown]
